FAERS Safety Report 12247097 (Version 1)
Quarter: 2016Q2

REPORT INFORMATION
  Report Type: Report from Study
  Country: US (occurrence: US)
  Receive Date: 20160407
  Receipt Date: 20160407
  Transmission Date: 20160815
  Serious: No
  Sender: FDA-Public Use
  Company Number: ADR-2015-00783

PATIENT
  Age: 57 Year
  Sex: Female

DRUGS (11)
  1. MORPHINE [Suspect]
     Active Substance: MORPHINE
     Dosage: 7.501 MG/DAY
     Route: 037
  2. COMPOUNDED BACLOFEN [Suspect]
     Active Substance: BACLOFEN
     Dosage: 75.01 MCG/DAY
     Route: 037
  3. CLONIDINE. [Suspect]
     Active Substance: CLONIDINE
     Dosage: 150.02 MCG/DAY
     Route: 037
  4. DILAUDID [Suspect]
     Active Substance: HYDROMORPHONE HYDROCHLORIDE
     Dosage: 0.7004 MG/DAY
     Route: 037
  5. CLONIDINE. [Suspect]
     Active Substance: CLONIDINE
     Dosage: 107.31 MCG/DAY
     Route: 037
     Dates: end: 20141113
  6. DILAUDID [Suspect]
     Active Substance: HYDROMORPHONE HYDROCHLORIDE
     Dosage: 0.7004 MG/DAY
     Route: 037
     Dates: start: 20141113
  7. BUPIVACAINE. [Suspect]
     Active Substance: BUPIVACAINE
     Dosage: 10.507 MG/DAY
     Route: 037
     Dates: start: 20141113
  8. BUPIVACAINE. [Suspect]
     Active Substance: BUPIVACAINE
     Dosage: 12.878 MG/DAY
     Route: 037
     Dates: end: 20141113
  9. CLONIDINE. [Suspect]
     Active Substance: CLONIDINE
     Dosage: 87.55 MCG/DAY
     Route: 037
     Dates: start: 20141113
  10. DILAUDID [Suspect]
     Active Substance: HYDROMORPHONE HYDROCHLORIDE
     Dosage: 0.8585 MG/DAY
     Route: 037
     Dates: end: 20141113
  11. BUPIVACAINE. [Suspect]
     Active Substance: BUPIVACAINE
     Dosage: 12.501 MG/DAY
     Route: 037

REACTIONS (2)
  - Sedation [Recovered/Resolved]
  - Asthenia [Recovered/Resolved]
